FAERS Safety Report 4971181-6 (Version None)
Quarter: 2006Q1

REPORT INFORMATION
  Report Type: 
  Country: None (occurrence: None)
  Receive Date: 20060222
  Receipt Date: 20051014
  Transmission Date: 20060701
  Serious: Yes (Other)
  Sender: FDA-Public Use
  Company Number: HQWYE098919OCT05

PATIENT
  Age: 77 Year
  Sex: Female
  Weight: 51.3 kg

DRUGS (2)
  1. PROTONIX [Suspect]
     Indication: GASTROOESOPHAGEAL REFLUX DISEASE
     Dosage: 40 MG 1X PER 1 DAY, ORAL
     Route: 048
     Dates: start: 20050926, end: 20051010
  2. FOSAMAX [Concomitant]

REACTIONS (3)
  - COELIAC DISEASE [None]
  - CONDITION AGGRAVATED [None]
  - DERMATITIS HERPETIFORMIS [None]
